FAERS Safety Report 10066608 (Version 1)
Quarter: 2014Q2

REPORT INFORMATION
  Report Type: Spontaneous
  Country: US (occurrence: None)
  Receive Date: 20140401
  Receipt Date: 20140401
  Transmission Date: 20141212
  Serious: Yes (Other)
  Sender: FDA-Public Use
  Company Number: PHEH2013US013138

PATIENT
  Age: 74 Year
  Sex: Female

DRUGS (4)
  1. EXELON PATCH (RIVASTIGMINE) TRANS-THERAPEUTIC-SYSTEM [Suspect]
     Dosage: 4.6 MG, ONE TIME DAILY, TRANSDERMAL
     Route: 062
     Dates: start: 201111
  2. MULTIVITAMIN (ASCORBIC ACID, CALCIUM PANTOTHENATE, ERGOCALCIFEROL, NICOTINAMIDE, PYRIDOXINE HYDROCHLORIDE, RETINOL, RIBOFLAVIN, THIAMINE HYDROCHLORIDE) [Concomitant]
  3. VITAMIN D (ERGOCALCIFEROL) [Concomitant]
  4. VITAMIN C (ASCORBIC ACID) [Concomitant]

REACTIONS (2)
  - Gastric ulcer [None]
  - Abdominal pain upper [None]
